FAERS Safety Report 7859636-8 (Version None)
Quarter: 2011Q4

REPORT INFORMATION
  Report Type: 
  Country: None (occurrence: None)
  Receive Date: 20111027
  Receipt Date: 20111017
  Transmission Date: 20120403
  Serious: Yes (Hospitalization, Other)
  Sender: FDA-Public Use
  Company Number: US-BAYER-2011-027721

PATIENT
  Age: 20 Year
  Sex: Female
  Weight: 65.76 kg

DRUGS (10)
  1. YASMIN [Suspect]
     Indication: CONTRACEPTION
     Dosage: UNK
     Dates: start: 20061001, end: 20080801
  2. IBUPROFEN [Concomitant]
     Dosage: UNK
     Dates: start: 19990101
  3. ALBUTEROL [Concomitant]
     Indication: BRONCHITIS
     Route: 055
  4. MYCOSTATIN [Concomitant]
     Indication: CANDIDIASIS
     Route: 048
  5. PREDNISONE [Concomitant]
     Indication: BRONCHITIS
  6. LEVAQUIN [Concomitant]
     Indication: BRONCHITIS
     Route: 048
  7. FLAGYL [Concomitant]
     Indication: CLOSTRIDIUM DIFFICILE COLITIS
     Route: 048
  8. NEXIUM [Concomitant]
     Route: 048
  9. AZITHROMYCIN [Concomitant]
     Indication: SINUSITIS
     Route: 048
  10. PREDNISONE [Concomitant]
     Indication: SINUSITIS
     Route: 048

REACTIONS (4)
  - CHOLECYSTITIS CHRONIC [None]
  - GALLBLADDER DISORDER [None]
  - ABDOMINAL PAIN [None]
  - PROCEDURAL COMPLICATION [None]
